FAERS Safety Report 9353544 (Version 1)
Quarter: 2013Q2

REPORT INFORMATION
  Report Type: Report from Study
  Country: IT (occurrence: IT)
  Receive Date: 20130618
  Receipt Date: 20130618
  Transmission Date: 20140414
  Serious: Yes (Other)
  Sender: FDA-Public Use
  Company Number: IT-UCBSA-088912

PATIENT
  Sex: Male

DRUGS (1)
  1. LEVETIRACETAM [Suspect]
     Indication: CONVULSION

REACTIONS (4)
  - Grand mal convulsion [Unknown]
  - Myoclonus [Unknown]
  - Anxiety [Unknown]
  - Insomnia [Unknown]
